FAERS Safety Report 21215700 (Version 1)
Quarter: 2022Q3

REPORT INFORMATION
  Report Type: Spontaneous
  Country: US (occurrence: None)
  Receive Date: 20220815
  Receipt Date: 20220815
  Transmission Date: 20221026
  Serious: No
  Sender: FDA-Public Use
  Company Number: None

PATIENT
  Age: 34 Year
  Sex: Female
  Weight: 56.25 kg

DRUGS (14)
  1. LAGEVRIO [Suspect]
     Active Substance: MOLNUPIRAVIR
     Indication: COVID-19
     Dosage: OTHER QUANTITY : 4 CAPSULE(S);?FREQUENCY : EVERY 12 HOURS;?
     Route: 048
     Dates: start: 20220719, end: 20220724
  2. LO LOESTRIN FE [Concomitant]
     Active Substance: ETHINYL ESTRADIOL\NORETHINDRONE ACETATE
  3. SPIRONOLACTONE [Concomitant]
     Active Substance: SPIRONOLACTONE
  4. RETIN-A [Concomitant]
     Active Substance: TRETINOIN
  5. NORTRIPTYLINE [Concomitant]
     Active Substance: NORTRIPTYLINE
  6. GABAPENTIN [Concomitant]
     Active Substance: GABAPENTIN
  7. Welcohol [Concomitant]
  8. PROBIOTICS NOS [Concomitant]
     Active Substance: PROBIOTICS NOS
  9. CHOLINE [Concomitant]
     Active Substance: CHOLINE
  10. VITAMINS [Concomitant]
     Active Substance: VITAMINS
  11. FISH OIL [Concomitant]
     Active Substance: FISH OIL
  12. MAGNESIUM [Concomitant]
     Active Substance: MAGNESIUM
  13. VITAMIN D [Suspect]
     Active Substance: VITAMIN D NOS
  14. CURCUMIN [Concomitant]
     Active Substance: CURCUMIN

REACTIONS (12)
  - Exophthalmos [None]
  - Paraesthesia oral [None]
  - Hypoaesthesia [None]
  - Ageusia [None]
  - Vision blurred [None]
  - Sensitive skin [None]
  - Rubber sensitivity [None]
  - Dizziness [None]
  - Hypertrichosis [None]
  - Feeling abnormal [None]
  - Drug ineffective [None]
  - SARS-CoV-2 test positive [None]

NARRATIVE: CASE EVENT DATE: 20220724
